FAERS Safety Report 4641042-0 (Version None)
Quarter: 2005Q2

REPORT INFORMATION
  Report Type: 
  Country: None (occurrence: None)
  Receive Date: 20050419
  Receipt Date: 20050419
  Transmission Date: 20051028
  Serious: Yes (Other)
  Sender: FDA-Public Use
  Company Number: None

PATIENT
  Age: 34 Year
  Sex: Female

DRUGS (1)
  1. CELEXA [Suspect]

REACTIONS (4)
  - ANXIETY [None]
  - DRUG EFFECT DECREASED [None]
  - NERVOUSNESS [None]
  - PHARMACEUTICAL PRODUCT COMPLAINT [None]
